FAERS Safety Report 8951083 (Version 1)
Quarter: 2012Q4

REPORT INFORMATION
  Report Type: 
  Country: AU (occurrence: AU)
  Receive Date: 20121207
  Receipt Date: 20121207
  Transmission Date: 20130627
  Serious: Yes (Other)
  Sender: FDA-Public Use
  Company Number: AU-PFIZER INC-2012305409

PATIENT
  Sex: Male

DRUGS (1)
  1. PRISTIQ [Suspect]
     Dosage: 200 mg, UNK

REACTIONS (8)
  - Drug withdrawal syndrome [Unknown]
  - Emotional disorder [Unknown]
  - Irritability [Unknown]
  - Depressed mood [Unknown]
  - Sleep disorder [Unknown]
  - Insomnia [Unknown]
  - Abnormal dreams [Unknown]
  - Drug ineffective [Unknown]
